FAERS Safety Report 6882323-X (Version None)
Quarter: 2010Q3

REPORT INFORMATION
  Report Type: 
  Country: None (occurrence: None)
  Receive Date: 20100729
  Receipt Date: 20091012
  Transmission Date: 20110219
  Serious: No
  Sender: FDA-Public Use
  Company Number: US-MYLANLABS-2009S1017954

PATIENT
  Age: 62 Year
  Sex: Female
  Weight: 60.33 kg

DRUGS (1)
  1. LEVOTHYROXINE SODIUM [Suspect]
     Indication: BASEDOW'S DISEASE
     Route: 048

REACTIONS (2)
  - DIZZINESS [None]
  - VERTIGO [None]
